FAERS Safety Report 6079567-6 (Version None)
Quarter: 2009Q1

REPORT INFORMATION
  Report Type: 
  Country: None (occurrence: None)
  Receive Date: 20090217
  Receipt Date: 20090210
  Transmission Date: 20090719
  Serious: No
  Sender: FDA-Public Use
  Company Number: US-JNJFOC-20090202917

PATIENT
  Sex: Female
  Weight: 99.79 kg

DRUGS (3)
  1. FENTANYL TRANSDERMAL SYSTEM [Suspect]
     Indication: FIBROMYALGIA
     Route: 062
  2. CYMBALTA [Concomitant]
     Indication: FIBROMYALGIA
     Route: 048
  3. NEURONTIN [Concomitant]
     Indication: FIBROMYALGIA
     Route: 048

REACTIONS (1)
  - WRONG TECHNIQUE IN DRUG USAGE PROCESS [None]
